FAERS Safety Report 13937378 (Version 1)
Quarter: 2017Q3

REPORT INFORMATION
  Report Type: Spontaneous
  Country: MX (occurrence: MX)
  Receive Date: 20170905
  Receipt Date: 20170905
  Transmission Date: 20171127
  Serious: Yes (Other)
  Sender: FDA-Public Use
  Company Number: PHHY2016MX119201

PATIENT
  Sex: Female
  Weight: 54 kg

DRUGS (5)
  1. CLOPIDOGREL [Concomitant]
     Active Substance: CLOPIDOGREL BISULFATE
     Indication: VARICES OESOPHAGEAL
     Dosage: 1 DF, QD
     Route: 048
     Dates: start: 20170820
  2. ASPIRIN PROTECT [Concomitant]
     Active Substance: ASPIRIN
     Indication: VARICES OESOPHAGEAL
     Dosage: 1 DF, QD
     Route: 048
     Dates: start: 2015
  3. EXFORGE [Suspect]
     Active Substance: AMLODIPINE BESYLATE\VALSARTAN
     Indication: HYPERTENSION
     Dosage: 1 DF, QD
     Route: 048
     Dates: start: 2015, end: 2016
  4. GELICART [Concomitant]
     Active Substance: DIETARY SUPPLEMENT
     Indication: CARTILAGE INJURY
     Dosage: 1 DF, QD
     Route: 048
     Dates: start: 20170823
  5. METFORMIN [Concomitant]
     Active Substance: METFORMIN HYDROCHLORIDE
     Indication: DIABETES MELLITUS
     Dosage: 1 DF, QD
     Route: 048
     Dates: start: 2010

REACTIONS (3)
  - Pain in extremity [Recovered/Resolved]
  - Peripheral swelling [Recovered/Resolved]
  - Chikungunya virus infection [Recovered/Resolved]

NARRATIVE: CASE EVENT DATE: 2016
